FAERS Safety Report 11030639 (Version 2)
Quarter: 2015Q2

REPORT INFORMATION
  Report Type: Other
  Country: DK (occurrence: CA)
  Receive Date: 20150415
  Receipt Date: 20150428
  Transmission Date: 20150821
  Serious: Yes (Other)
  Sender: FDA-Public Use
  Company Number: CA-FRI-1000075838

PATIENT
  Age: 50 Year
  Sex: Female

DRUGS (1)
  1. CITALOPRAM [Suspect]
     Active Substance: CITALOPRAM HYDROBROMIDE
     Indication: MAJOR DEPRESSION
     Dosage: 20 MG
     Route: 065

REACTIONS (6)
  - Hyperhidrosis [Unknown]
  - Withdrawal syndrome [Unknown]
  - Condition aggravated [Unknown]
  - Nausea [Unknown]
  - Major depression [Not Recovered/Not Resolved]
  - Agitation [Unknown]
